FAERS Safety Report 7788569-0 (Version None)
Quarter: 2011Q3

REPORT INFORMATION
  Report Type: 
  Country: None (occurrence: None)
  Receive Date: 20110930
  Receipt Date: 20110928
  Transmission Date: 20111222
  Serious: Yes (Other)
  Sender: FDA-Public Use
  Company Number: FR-SANOFI-AVENTIS-2010SA001283

PATIENT
  Age: 74 Year
  Sex: Female

DRUGS (9)
  1. RISPERDAL [Suspect]
     Route: 048
     Dates: end: 20090626
  2. AKINETON [Suspect]
     Route: 048
     Dates: start: 20090421, end: 20090626
  3. URBANYL [Suspect]
     Route: 048
     Dates: start: 20090429, end: 20090623
  4. DEPAKENE [Suspect]
     Route: 048
     Dates: start: 20090421, end: 20090708
  5. RISPERDAL [Suspect]
     Route: 048
     Dates: start: 20090423
  6. RISPERDAL [Suspect]
     Route: 048
  7. TIAPRIDE ^PANPHARMA^ [Suspect]
     Route: 048
     Dates: start: 20090608, end: 20090623
  8. URBANYL [Suspect]
     Route: 048
     Dates: start: 20090626, end: 20090708
  9. ZOLPIDEM [Suspect]
     Route: 048
     Dates: start: 20090421, end: 20090713

REACTIONS (1)
  - THROMBOCYTOPENIA [None]
